FAERS Safety Report 11345086 (Version 1)
Quarter: 2015Q3

REPORT INFORMATION
  Report Type: Spontaneous
  Country: US (occurrence: US)
  Receive Date: 20150806
  Receipt Date: 20150806
  Transmission Date: 20151125
  Serious: Yes (Death)
  Sender: FDA-Public Use
  Company Number: US-UNITED THERAPEUTICS-UNT-2015-008980

PATIENT
  Age: 55 Year
  Sex: Female
  Weight: 44.44 kg

DRUGS (1)
  1. REMODULIN [Suspect]
     Active Substance: TREPROSTINIL
     Indication: PULMONARY ARTERIAL HYPERTENSION
     Dosage: 0.028 ?G/KG, CONTINUING
     Route: 058
     Dates: start: 20140905

REACTIONS (1)
  - Death [Fatal]

NARRATIVE: CASE EVENT DATE: 20150729
